FAERS Safety Report 19036509 (Version 1)
Quarter: 2021Q1

REPORT INFORMATION
  Report Type: Spontaneous
  Country: US (occurrence: US)
  Receive Date: 20210322
  Receipt Date: 20210322
  Transmission Date: 20210420
  Serious: No
  Sender: FDA-Public Use
  Company Number: US-SA-2021SA091500

PATIENT
  Age: 36 Year
  Sex: Female

DRUGS (10)
  1. AMOXICILLIN. [Concomitant]
     Active Substance: AMOXICILLIN
  2. SAVELLA [Concomitant]
     Active Substance: MILNACIPRAN HYDROCHLORIDE
  3. CHLORZOXAZON [Concomitant]
     Active Substance: CHLORZOXAZONE
  4. PREGABALIN. [Concomitant]
     Active Substance: PREGABALIN
  5. DESVENLAFAXINE. [Concomitant]
     Active Substance: DESVENLAFAXINE
  6. DUPIXENT [Suspect]
     Active Substance: DUPILUMAB
     Indication: DERMATITIS ATOPIC
     Dosage: 600 MG, 1X
     Route: 058
     Dates: start: 20210105, end: 20210105
  7. RIZATRIPTAN. [Concomitant]
     Active Substance: RIZATRIPTAN
  8. BELBUCA [Concomitant]
     Active Substance: BUPRENORPHINE HYDROCHLORIDE
  9. CLONAZEPAM. [Concomitant]
     Active Substance: CLONAZEPAM
  10. LAMOTRIGINE. [Concomitant]
     Active Substance: LAMOTRIGINE

REACTIONS (5)
  - Sleep disorder [Unknown]
  - Impaired quality of life [Unknown]
  - Condition aggravated [Unknown]
  - Dermatitis atopic [Unknown]
  - Rash pruritic [Unknown]

NARRATIVE: CASE EVENT DATE: 2021
